FAERS Safety Report 15859407 (Version 1)
Quarter: 2019Q1

REPORT INFORMATION
  Report Type: Spontaneous
  Country: PR (occurrence: PR)
  Receive Date: 20190123
  Receipt Date: 20190123
  Transmission Date: 20190417
  Serious: Yes (Other)
  Sender: FDA-Public Use
  Company Number: None

PATIENT
  Age: 18 Year
  Sex: Male

DRUGS (1)
  1. PEROXIE CARE TARTAR CONTROL HEALTHY GUMS BAKING SODA AND PEROXIDE [Suspect]
     Active Substance: SODIUM FLUORIDE
     Indication: DENTAL DISORDER PROPHYLAXIS
     Dosage: ?          QUANTITY:6.0 OUNCE(S);?
     Route: 048
     Dates: start: 20190122, end: 20190123

REACTIONS (4)
  - Burn oral cavity [None]
  - Skin exfoliation [None]
  - Thermal burn [None]
  - Gingival disorder [None]

NARRATIVE: CASE EVENT DATE: 20190123
